FAERS Safety Report 7283804-X (Version None)
Quarter: 2011Q1

REPORT INFORMATION
  Report Type: 
  Country: None (occurrence: None)
  Receive Date: 20110209
  Receipt Date: 20110125
  Transmission Date: 20110831
  Serious: Yes (Other)
  Sender: FDA-Public Use
  Company Number: GB-MERCK-1101GBR00113B1

PATIENT

DRUGS (1)
  1. ZOCOR [Suspect]
     Route: 064

REACTIONS (1)
  - FOETAL DISTRESS SYNDROME [None]
